FAERS Safety Report 10515366 (Version 2)
Quarter: 2014Q4

REPORT INFORMATION
  Report Type: Report from Study
  Country: JP (occurrence: JP)
  Receive Date: 20141014
  Receipt Date: 20141113
  Transmission Date: 20150528
  Serious: No
  Sender: FDA-Public Use
  Company Number: JP-009507513-1410JPN005809

PATIENT
  Age: 67 Year
  Sex: Male
  Weight: 87 kg

DRUGS (8)
  1. METHYCOBAL [Concomitant]
     Active Substance: METHYLCOBALAMIN
     Dosage: 500 MICROGRAM, TID
     Route: 065
     Dates: start: 201205
  2. HERBAL NOS [Concomitant]
     Active Substance: HERBALS
     Indication: HEPATIC CIRRHOSIS
     Dosage: DAILY DOSE UNKNOWN, AS NEEDED
     Route: 048
     Dates: start: 200606
  3. URSO [Concomitant]
     Active Substance: URSODIOL
     Indication: HEPATIC CIRRHOSIS
     Dosage: 200 MG, TID
     Route: 048
     Dates: start: 200910
  4. REBETOL [Suspect]
     Active Substance: RIBAVIRIN
     Indication: HEPATIC CIRRHOSIS
     Dosage: 400 MG, QD
     Route: 048
     Dates: start: 20121116, end: 20130118
  5. LIVACT [Concomitant]
     Active Substance: AMINO ACIDS
     Indication: HEPATIC CIRRHOSIS
     Dosage: 4.15 G, TID
     Route: 048
     Dates: start: 200910
  6. PEGINTRON [Suspect]
     Active Substance: PEGINTERFERON ALFA-2B
     Indication: HEPATIC CIRRHOSIS
     Dosage: 20 MICROGRAM, QW
     Route: 058
     Dates: start: 20121116, end: 20121130
  7. PEGINTRON [Suspect]
     Active Substance: PEGINTERFERON ALFA-2B
     Dosage: 10 MICROGRAM, QW
     Route: 058
     Dates: start: 20121207, end: 20130118
  8. HERBAL NOS [Concomitant]
     Active Substance: HERBALS
     Indication: NEUROPATHY PERIPHERAL

REACTIONS (1)
  - Ascites [Recovering/Resolving]

NARRATIVE: CASE EVENT DATE: 20130118
